FAERS Safety Report 5624476-7 (Version None)
Quarter: 2008Q1

REPORT INFORMATION
  Report Type: 
  Country: None (occurrence: None)
  Receive Date: 20080213
  Receipt Date: 20080130
  Transmission Date: 20080703
  Serious: Yes (Other)
  Sender: FDA-Public Use
  Company Number: AU-AMGEN-US254242

PATIENT
  Sex: Female
  Weight: 76.1 kg

DRUGS (3)
  1. PALIFERMIN [Suspect]
     Indication: STOMATITIS
     Route: 065
     Dates: start: 20071118
  2. ALLOPURINOL [Concomitant]
     Route: 065
     Dates: start: 20071119
  3. BACTRIM DS [Concomitant]
     Route: 065
     Dates: start: 20071119

REACTIONS (1)
  - HYPERSENSITIVITY [None]
